FAERS Safety Report 11334336 (Version 2)
Quarter: 2015Q3

REPORT INFORMATION
  Report Type: Spontaneous
  Country: AU (occurrence: AU)
  Receive Date: 20150803
  Receipt Date: 20150909
  Transmission Date: 20151125
  Serious: Yes (Hospitalization)
  Sender: FDA-Public Use
  Company Number: AU-AMGEN-AUSSP2015077750

PATIENT
  Age: 80 Year
  Sex: Female

DRUGS (5)
  1. CALCITRIOL. [Suspect]
     Active Substance: CALCITRIOL
     Indication: TETANY
     Dosage: 0.5 MUG, QID
     Route: 065
  2. PROLIA [Suspect]
     Active Substance: DENOSUMAB
     Indication: OSTEOPOROSIS
     Dosage: 60 MG, UNK
     Route: 058
  3. CALCIUM GLUCONATE. [Suspect]
     Active Substance: CALCIUM GLUCONATE
     Indication: TETANY
     Dosage: UNK
     Route: 042
  4. CALCIUM CARBONATE. [Suspect]
     Active Substance: CALCIUM CARBONATE
     Indication: TETANY
     Dosage: 3 G, TID
     Route: 065
  5. CHOLECALCIFEROL [Concomitant]
     Active Substance: CHOLECALCIFEROL
     Dosage: 25 MUG, QD

REACTIONS (2)
  - Hypercalcaemia [Unknown]
  - Tetany [Unknown]
